FAERS Safety Report 7654341-5 (Version None)
Quarter: 2011Q3

REPORT INFORMATION
  Report Type: 
  Country: None (occurrence: None)
  Receive Date: 20110803
  Receipt Date: 20110725
  Transmission Date: 20111222
  Serious: Yes (Hospitalization)
  Sender: FDA-Public Use
  Company Number: DE-BAYER-2011-054320

PATIENT
  Age: 52 Year
  Sex: Male
  Weight: 83 kg

DRUGS (3)
  1. IBUPROFEN [Concomitant]
     Dosage: 1 DF, QOD
  2. TRILEPTAL [Concomitant]
     Dosage: 1 DF, QD
  3. BETASERON [Suspect]
     Indication: MULTIPLE SCLEROSIS
     Dosage: 250 ?G/ML, UNK

REACTIONS (9)
  - MOBILITY DECREASED [None]
  - MULTIPLE SCLEROSIS [None]
  - DYSARTHRIA [None]
  - URINE ANALYSIS ABNORMAL [None]
  - FEBRILE INFECTION [None]
  - ASTHENIA [None]
  - QUADRIPARESIS [None]
  - LEUKOPENIA [None]
  - DIZZINESS [None]
